FAERS Safety Report 4565589-0 (Version None)
Quarter: 2005Q1

REPORT INFORMATION
  Report Type: 
  Country: None (occurrence: None)
  Receive Date: 20050125
  Receipt Date: 20050125
  Transmission Date: 20050727
  Serious: Yes (Hospitalization)
  Sender: FDA-Public Use
  Company Number: None

PATIENT
  Age: 57 Year
  Sex: Male
  Weight: 126.8 kg

DRUGS (12)
  1. LISINOPRIL [Suspect]
     Indication: CARDIAC FAILURE CONGESTIVE
     Dosage: 40MG20MG,BID, ORAL
     Route: 048
     Dates: end: 20041025
  2. COUMADIN [Concomitant]
  3. LANOXIN [Concomitant]
  4. PROPOXYPHENE HCL [Concomitant]
  5. BUPROPION HCL [Concomitant]
  6. FLUOXETINE HCL [Concomitant]
  7. LISINOPRIL [Concomitant]
  8. SIMVASTATIN [Concomitant]
  9. CARVEDILOL [Concomitant]
  10. ALPRAZOLAM [Concomitant]
  11. NAPROXEN [Concomitant]
  12. NITROGLYCERIN [Concomitant]

REACTIONS (1)
  - HYPERKALAEMIA [None]
